FAERS Safety Report 6918863-4 (Version None)
Quarter: 2010Q3

REPORT INFORMATION
  Report Type: 
  Country: None (occurrence: None)
  Receive Date: 20100811
  Receipt Date: 20100730
  Transmission Date: 20110219
  Serious: Yes (Life-Threatening, Disabling, Other)
  Sender: FDA-Public Use
  Company Number: JP-SANOFI-AVENTIS-2010SA044740

PATIENT
  Age: 55 Year
  Sex: Female
  Weight: 52 kg

DRUGS (11)
  1. ELPLAT [Suspect]
     Indication: RECTAL CANCER
     Route: 041
     Dates: start: 20091029, end: 20091029
  2. ELPLAT [Suspect]
     Route: 041
     Dates: start: 20100624, end: 20100624
  3. XELODA [Suspect]
     Indication: RECTAL CANCER
     Route: 048
     Dates: start: 20091029, end: 20100628
  4. AVASTIN [Suspect]
     Indication: RECTAL CANCER
     Route: 042
     Dates: start: 20091110, end: 20091119
  5. AVASTIN [Suspect]
     Route: 042
     Dates: start: 20100624, end: 20100624
  6. AMINOLEBAN [Concomitant]
     Route: 041
     Dates: start: 20100629
  7. AMOBAN [Concomitant]
     Route: 048
  8. NEUROVITAN [Concomitant]
  9. MAGLAX [Concomitant]
  10. LOXOPROFEN [Concomitant]
  11. SELBEX [Concomitant]
     Route: 048

REACTIONS (4)
  - ALTERED STATE OF CONSCIOUSNESS [None]
  - HYPERAMMONAEMIA [None]
  - PORTAL HYPERTENSION [None]
  - SPLENOMEGALY [None]
